FAERS Safety Report 8592976 (Version 5)
Quarter: 2012Q4

REPORT INFORMATION
  Report Type: 
  Country: US (occurrence: US)
  Receive Date: 20120604
  Receipt Date: 20120917
  Transmission Date: 20130627
  Serious: Yes (Death, Hospitalization, Other)
  Sender: FDA-Public Use
  Company Number: US-BIOGENIDEC-2012BI018728

PATIENT
  Age: 54 None
  Sex: Female

DRUGS (11)
  1. AVONEX [Suspect]
     Indication: MULTIPLE SCLEROSIS
     Route: 030
     Dates: end: 20061107
  2. NEURONTIN [Concomitant]
  3. NEURONTIN [Concomitant]
  4. LISINOPRIL [Concomitant]
  5. OMEGA-3 FATTY ACIDS [Concomitant]
  6. OSCAL [Concomitant]
  7. PLETAL [Concomitant]
  8. NAMENDA [Concomitant]
  9. ZANAFLEX [Concomitant]
  10. LOVENOX [Concomitant]
  11. PRADAXA [Concomitant]

REACTIONS (16)
  - Adverse drug reaction [Fatal]
  - Cerebrovascular accident [Unknown]
  - Deep vein thrombosis [Unknown]
  - Cholecystectomy [Unknown]
  - Sick sinus syndrome [Unknown]
  - Arrhythmia [Unknown]
  - General physical health deterioration [Unknown]
  - Gastrointestinal ulcer haemorrhage [Unknown]
  - Blood pressure increased [Unknown]
  - Micturition urgency [Unknown]
  - Urinary incontinence [Unknown]
  - Periarthritis [Unknown]
  - Constipation [Unknown]
  - Adverse event [Unknown]
  - Cerebral ischaemia [Unknown]
  - Muscle spasticity [Unknown]
